FAERS Safety Report 8439466 (Version 2)
Quarter: 2013Q2

REPORT INFORMATION
  Report Type: Spontaneous
  Country: US (occurrence: None)
  Receive Date: 20120104
  Receipt Date: 20120508
  Transmission Date: 20140414
  Serious: No
  Sender: FDA-Public Use
  Company Number: 2011HGS-002847

PATIENT
  Age: 50 Year
  Sex: Female
  Weight: 62.6 kg

DRUGS (11)
  1. BENLYSTA [Suspect]
     Indication: SYSTEMIC LUPUS ERYTHEMATOSUS
     Route: 041
     Dates: start: 20110715
  2. PLAQUENIL (HYDROXYCHLOROQUINE SULFATE) (HYDROXYCHLOROQUINE SULFATE) [Concomitant]
  3. LYRICA [Concomitant]
  4. CLONAZEPAM [Concomitant]
  5. MIGRANAL (DIHYDROERGOTAMINE MESILATE) (DIHYDROERGOTAMINE MESILATE) [Concomitant]
  6. CALCIUM WITH VITAMIN D (CALCIUM WITH VITAMIN D) (ERGOCALCIFEROL, CALCIUM PHOSPHATE, CALCIUM SODIUM LACTATE) [Concomitant]
  7. ESTRADIOL [Concomitant]
  8. ZOFRAN (ONDANSETRON HYDROCHLORIDE) (ONDANSETRON HYDROCHLORIDE) [Concomitant]
  9. PENNSAID (DICLOFENAC SODIUM) (DICLOFENAC SODIUM) [Concomitant]
  10. XANAX (ALPRAZOLAM) (ALPRAZOLAM) [Concomitant]
  11. LEVOTHYROXINE (LEVOTHYROXINE) (LEVOTHYROXINE) [Concomitant]

REACTIONS (4)
  - FATIGUE [None]
  - DECREASED APPETITE [None]
  - NAUSEA [None]
  - Headache [None]
